FAERS Safety Report 6284632-4 (Version None)
Quarter: 2009Q3

REPORT INFORMATION
  Report Type: 
  Country: None (occurrence: None)
  Receive Date: 20090723
  Receipt Date: 20090715
  Transmission Date: 20100115
  Serious: Yes (Other)
  Sender: FDA-Public Use
  Company Number: 2009AL002567

PATIENT
  Age: 64 Year
  Sex: Female

DRUGS (6)
  1. DIGOXIN [Suspect]
     Dosage: 0.25 MG DAILY PO
     Route: 048
     Dates: start: 20050401
  2. PROMETHAZINE [Concomitant]
  3. FLUOXETINE [Concomitant]
  4. HYDROCODONE [Concomitant]
  5. LORAZEPAM [Concomitant]
  6. CYPROHEPTADINE HCL [Concomitant]

REACTIONS (1)
  - THERAPEUTIC AGENT TOXICITY [None]
